APPROVED DRUG PRODUCT: CETIRIZINE HYDROCHLORIDE ALLERGY
Active Ingredient: CETIRIZINE HYDROCHLORIDE
Strength: 5MG
Dosage Form/Route: TABLET;ORAL
Application: A078072 | Product #003
Applicant: TARO PHARMACEUTICAL INDUSTRIES LTD
Approved: Jul 22, 2009 | RLD: No | RS: No | Type: DISCN